FAERS Safety Report 8444562-6 (Version None)
Quarter: 2012Q2

REPORT INFORMATION
  Report Type: 
  Country: None (occurrence: None)
  Receive Date: 20120611
  Receipt Date: 20120531
  Transmission Date: 20120825
  Serious: Yes (Other)
  Sender: FDA-Public Use
  Company Number: 2012SP020558

PATIENT
  Age: 67 Year
  Sex: Female
  Weight: 53 kg

DRUGS (17)
  1. URSO 250 [Concomitant]
  2. OTHER HORMONES NOVAMIN [Concomitant]
  3. PEG-INTRON [Suspect]
     Indication: HEPATITIS C
     Dosage: 1.5;1.3;1.13;0.94 MCG/KG,QW,SC
     Route: 058
     Dates: start: 20120427, end: 20120510
  4. PEG-INTRON [Suspect]
     Indication: HEPATITIS C
     Dosage: 1.5;1.3;1.13;0.94 MCG/KG,QW,SC
     Route: 058
     Dates: start: 20120511
  5. PEG-INTRON [Suspect]
     Indication: HEPATITIS C
     Dosage: 1.5;1.3;1.13;0.94 MCG/KG,QW,SC
     Route: 058
     Dates: start: 20120330
  6. PEG-INTRON [Suspect]
     Indication: HEPATITIS C
     Dosage: 1.5;1.3;1.13;0.94 MCG/KG,QW,SC
     Route: 058
     Dates: start: 20120406, end: 20120426
  7. PEG-INTRON [Suspect]
     Indication: HEPATITIS C
     Dosage: 1.5;1.3;1.13;0.94 MCG/KG,QW,SC
     Route: 058
     Dates: start: 20120217, end: 20120329
  8. PEG-INTRON [Suspect]
     Indication: HEPATITIS C
     Dosage: 1.5;1.3;1.13;0.94 MCG/KG,QW,SC
     Route: 058
     Dates: end: 20120405
  9. TELAVIC (ANTIVIRALS NOS) [Suspect]
     Indication: HEPATITIS C
     Dosage: 2250;1500;750 MG, QD, PO
     Route: 048
     Dates: start: 20120224, end: 20120322
  10. TELAVIC (ANTIVIRALS NOS) [Suspect]
     Indication: HEPATITIS C
     Dosage: 2250;1500;750 MG, QD, PO
     Route: 048
     Dates: start: 20120323, end: 20120413
  11. TELAVIC (ANTIVIRALS NOS) [Suspect]
     Indication: HEPATITIS C
     Dosage: 2250;1500;750 MG, QD, PO
     Route: 048
     Dates: start: 20120217, end: 20120223
  12. DIOVAN [Concomitant]
  13. REBETOL [Suspect]
     Indication: HEPATITIS C
     Dosage: 600;400;200 MG, QD, PO
     Route: 048
     Dates: start: 20120224, end: 20120315
  14. REBETOL [Suspect]
     Indication: HEPATITIS C
     Dosage: 600;400;200 MG, QD, PO
     Route: 048
     Dates: start: 20120420
  15. REBETOL [Suspect]
     Indication: HEPATITIS C
     Dosage: 600;400;200 MG, QD, PO
     Route: 048
     Dates: start: 20120217, end: 20120223
  16. REBETOL [Suspect]
     Indication: HEPATITIS C
     Dosage: 600;400;200 MG, QD, PO
     Route: 048
     Dates: start: 20120316, end: 20120419
  17. AMLODIPINE [Concomitant]

REACTIONS (5)
  - DECREASED APPETITE [None]
  - HYPERURICAEMIA [None]
  - RENAL IMPAIRMENT [None]
  - ANAEMIA [None]
  - NAUSEA [None]
